FAERS Safety Report 6916746-7 (Version None)
Quarter: 2010Q3

REPORT INFORMATION
  Report Type: 
  Country: None (occurrence: None)
  Receive Date: 20100810
  Receipt Date: 20100730
  Transmission Date: 20110219
  Serious: Yes (Other)
  Sender: FDA-Public Use
  Company Number: US-ROCHE-718856

PATIENT

DRUGS (2)
  1. AVASTIN [Suspect]
     Indication: RENAL CANCER METASTATIC
     Route: 065
  2. TORISEL [Suspect]
     Indication: RENAL CANCER METASTATIC
     Route: 065

REACTIONS (2)
  - CHEST PAIN [None]
  - VENTRICULAR TACHYCARDIA [None]
